FAERS Safety Report 21119586 (Version 1)
Quarter: 2022Q3

REPORT INFORMATION
  Report Type: Spontaneous
  Country: US (occurrence: US)
  Receive Date: 20220722
  Receipt Date: 20220722
  Transmission Date: 20221027
  Serious: Yes (Death, Hospitalization, Other)
  Sender: FDA-Public Use
  Company Number: US-SLATE RUN PHARMACEUTICALS-22US001212

PATIENT

DRUGS (6)
  1. AZITHROMYCIN [Suspect]
     Active Substance: AZITHROMYCIN
     Indication: Maternal exposure during pregnancy
     Dosage: UNK
     Dates: start: 2020, end: 2020
  2. EPOPROSTENOL [Concomitant]
     Active Substance: EPOPROSTENOL
     Indication: Maternal exposure during pregnancy
     Dosage: UNK
     Route: 055
     Dates: start: 2020, end: 2020
  3. HYDROXYCHLOROQUINE [Concomitant]
     Active Substance: HYDROXYCHLOROQUINE
     Indication: Maternal exposure during pregnancy
     Dosage: UNK
     Dates: start: 2020, end: 2020
  4. REMDESIVIR [Concomitant]
     Active Substance: REMDESIVIR
     Indication: Maternal exposure during pregnancy
     Dosage: UNK
     Dates: start: 2020, end: 2020
  5. UNSPECIFIED INGREDIENT [Concomitant]
     Active Substance: UNSPECIFIED INGREDIENT
     Indication: Maternal exposure during pregnancy
     Dosage: UNK
     Dates: start: 2020, end: 2020
  6. UNSPECIFIED INGREDIENT [Concomitant]
     Active Substance: UNSPECIFIED INGREDIENT
     Indication: Maternal exposure during pregnancy
     Dosage: UNK
     Dates: start: 2020, end: 2020

REACTIONS (4)
  - Death neonatal [Fatal]
  - Premature baby [Unknown]
  - Apgar score low [Recovering/Resolving]
  - Foetal exposure during pregnancy [Recovered/Resolved]

NARRATIVE: CASE EVENT DATE: 20200101
